FAERS Safety Report 6627793-7 (Version None)
Quarter: 2010Q1

REPORT INFORMATION
  Report Type: 
  Country: None (occurrence: None)
  Receive Date: 20100308
  Receipt Date: 20100222
  Transmission Date: 20100710
  Serious: Yes (Death)
  Sender: FDA-Public Use
  Company Number: B0636948A

PATIENT
  Age: 76 Year

DRUGS (5)
  1. CARBOPLATIN (FORMULATION UNKNOWN) (CARBOPLATIN) (GENERIC) [Suspect]
     Indication: BREAST CANCER METASTATIC
     Dosage: INTRAVENOUS
     Route: 042
  2. DIPHENHYDRAMINE (FORMULATION UNKNOWN) (DIPHENHYDRAMINE) (GENERIC) [Suspect]
     Indication: BREAST CANCER METASTATIC
     Dosage: 50 MG
  3. RANITIDINE HYDROCHLORIDE (FORMULATION UNKNOWN) (RANITIDINE HYDROCHLORI [Suspect]
     Indication: BREAST CANCER METASTATIC
     Dosage: 150 MG
  4. TRASTUZUMAB (FORMULATION UNKNOWN) (TRASTUZUMAB) [Suspect]
     Indication: BREAST CANCER METASTATIC
     Dosage: 4 MG/KG/INTRAVENOUS
     Route: 042
  5. IXABEPILONE (FORMULATION UNKNOWN) (IXABEPILONE) [Suspect]
     Indication: BREAST CANCER METASTATIC
     Dosage: 15 MG/M2/INTRAVENOUS
     Route: 042

REACTIONS (3)
  - DIARRHOEA [None]
  - HYPOTENSION [None]
  - SEPSIS [None]
